FAERS Safety Report 24406008 (Version 3)
Quarter: 2025Q2

REPORT INFORMATION
  Report Type: Spontaneous
  Country: ZA (occurrence: ZA)
  Receive Date: 20241007
  Receipt Date: 20250619
  Transmission Date: 20250717
  Serious: Yes (Other)
  Sender: ALEXION PHARMACEUTICALS
  Company Number: ZA-AstraZeneca-CH-00711164A

PATIENT
  Age: 41 Year
  Weight: 70 kg

DRUGS (1)
  1. DAPAGLIFLOZIN [Suspect]
     Active Substance: DAPAGLIFLOZIN
     Indication: Renal impairment
     Dosage: 10 MILLIGRAM, QD

REACTIONS (4)
  - Cardiac disorder [Not Recovered/Not Resolved]
  - Mitral valve stenosis [Unknown]
  - Hyperdynamic left ventricle [Unknown]
  - Off label use [Unknown]
